FAERS Safety Report 7621593-7 (Version None)
Quarter: 2011Q3

REPORT INFORMATION
  Report Type: 
  Country: None (occurrence: None)
  Receive Date: 20110719
  Receipt Date: 20100808
  Transmission Date: 20111222
  Serious: Yes (Life-Threatening, Hospitalization)
  Sender: FDA-Public Use
  Company Number: PHHY2010US92326

PATIENT
  Age: 67 Year
  Sex: Female
  Weight: 72.562 kg

DRUGS (1)
  1. RECLAST [Suspect]
     Indication: OSTEOPOROSIS
     Dosage: 5 MG, YEARLY ONCE
     Dates: start: 20100805

REACTIONS (8)
  - LOSS OF CONSCIOUSNESS [None]
  - SWELLING [None]
  - HEPATIC ENZYME INCREASED [None]
  - HYPOTENSION [None]
  - LIVER INJURY [None]
  - RENAL FAILURE [None]
  - DYSPNOEA [None]
  - BLOOD POTASSIUM INCREASED [None]
